FAERS Safety Report 22532171 (Version 1)
Quarter: 2023Q2

REPORT INFORMATION
  Report Type: Spontaneous
  Country: US (occurrence: None)
  Receive Date: 20230606
  Receipt Date: 20230606
  Transmission Date: 20230722
  Serious: No
  Sender: FDA-Public Use
  Company Number: None

PATIENT
  Age: 48 Year
  Sex: Female
  Weight: 72.76 kg

DRUGS (6)
  1. VERZENIO [Suspect]
     Active Substance: ABEMACICLIB
     Indication: Neoplasm malignant
     Dosage: 50MG TWICE DAILY ORAL?
     Route: 048
  2. AMLODIPINE [Concomitant]
     Active Substance: AMLODIPINE BESYLATE
  3. ANASTROZOLE [Concomitant]
     Active Substance: ANASTROZOLE
  4. LISINOPRIL [Concomitant]
     Active Substance: LISINOPRIL
  5. HYDROCORTISONE [Concomitant]
     Active Substance: HYDROCORTISONE
  6. TRIAMCINOLONE ACETONIDE [Concomitant]
     Active Substance: TRIAMCINOLONE ACETONIDE

REACTIONS (3)
  - Erythema [None]
  - Pruritus [None]
  - Alopecia [None]
